FAERS Safety Report 6095756-9 (Version None)
Quarter: 2009Q1

REPORT INFORMATION
  Report Type: 
  Country: None (occurrence: None)
  Receive Date: 20090227
  Receipt Date: 20080610
  Transmission Date: 20090719
  Serious: No
  Sender: FDA-Public Use
  Company Number: A0732244A

PATIENT
  Age: 69 Year
  Sex: Female

DRUGS (3)
  1. LAMICTAL [Suspect]
     Indication: DEPRESSION
     Dosage: 25MG TWICE PER DAY
     Route: 048
     Dates: start: 20080419
  2. RISPERDAL [Concomitant]
  3. VALIUM [Concomitant]

REACTIONS (1)
  - ABDOMINAL PAIN UPPER [None]
